FAERS Safety Report 11021807 (Version 2)
Quarter: 2015Q2

REPORT INFORMATION
  Report Type: Spontaneous
  Country: US (occurrence: US)
  Receive Date: 20150413
  Receipt Date: 20150521
  Transmission Date: 20150821
  Serious: Yes (Other)
  Sender: FDA-Public Use
  Company Number: US-PFIZER INC-2015121191

PATIENT
  Age: 66 Year
  Sex: Male
  Weight: 99 kg

DRUGS (1)
  1. CELEBREX [Suspect]
     Active Substance: CELECOXIB
     Indication: ARTHRITIS
     Dosage: 200 MG, 1X/DAY
     Route: 048

REACTIONS (2)
  - Arthropathy [Unknown]
  - Procedural pain [Unknown]

NARRATIVE: CASE EVENT DATE: 2015
